FAERS Safety Report 19987721 (Version 1)
Quarter: 2021Q4

REPORT INFORMATION
  Report Type: Spontaneous
  Country: US (occurrence: US)
  Receive Date: 20211022
  Receipt Date: 20211022
  Transmission Date: 20220303
  Serious: Yes (Hospitalization, Other)
  Sender: FDA-Public Use
  Company Number: US-BAYER-2021A231707

PATIENT

DRUGS (1)
  1. BAYER LOW DOSE [Suspect]
     Active Substance: ASPIRIN
     Indication: Hip arthroplasty
     Dosage: 2 DF, BID

REACTIONS (3)
  - Exsanguination [Unknown]
  - Off label use [Unknown]
  - Gastric ulcer [Unknown]
